FAERS Safety Report 22377761 (Version 1)
Quarter: 2023Q2

REPORT INFORMATION
  Report Type: Spontaneous
  Country: US (occurrence: US)
  Receive Date: 20230529
  Receipt Date: 20230529
  Transmission Date: 20230722
  Serious: No
  Sender: FDA-Public Use
  Company Number: US-ELI_LILLY_AND_COMPANY-US202305016207

PATIENT
  Sex: Male

DRUGS (5)
  1. INSULIN LISPRO JUNIOR KWIKPEN [Suspect]
     Active Substance: INSULIN LISPRO
     Indication: Diabetes mellitus
     Dosage: 5 U, PRN (WITH SLIDING SCALE)
     Route: 058
  2. INSULIN LISPRO JUNIOR KWIKPEN [Suspect]
     Active Substance: INSULIN LISPRO
     Indication: Diabetes mellitus
     Dosage: 5 U, PRN (WITH SLIDING SCALE)
     Route: 058
  3. INSULIN LISPRO JUNIOR KWIKPEN [Suspect]
     Active Substance: INSULIN LISPRO
     Dosage: UNK UNK, PRN (WITH SLIDING SCALE)
     Route: 058
  4. INSULIN LISPRO JUNIOR KWIKPEN [Suspect]
     Active Substance: INSULIN LISPRO
     Dosage: UNK UNK, PRN (WITH SLIDING SCALE)
     Route: 058
  5. TRESIBA [Concomitant]
     Active Substance: INSULIN DEGLUDEC
     Indication: Diabetes mellitus
     Dosage: 13 U, DAILY
     Route: 065

REACTIONS (2)
  - Incorrect dose administered [Recovering/Resolving]
  - Blood glucose increased [Recovering/Resolving]
